FAERS Safety Report 7564206-5 (Version None)
Quarter: 2011Q2

REPORT INFORMATION
  Report Type: 
  Country: None (occurrence: None)
  Receive Date: 20110622
  Receipt Date: 20110608
  Transmission Date: 20111010
  Serious: Yes (Other)
  Sender: FDA-Public Use
  Company Number: PHHY2011SE50266

PATIENT

DRUGS (1)
  1. CLOZAPINE [Suspect]
     Indication: PSYCHOTIC DISORDER
     Dates: end: 20110608

REACTIONS (3)
  - WHITE BLOOD CELL COUNT DECREASED [None]
  - OROPHARYNGEAL PAIN [None]
  - NEUTROPHIL COUNT DECREASED [None]
